FAERS Safety Report 24874517 (Version 3)
Quarter: 2025Q1

REPORT INFORMATION
  Report Type: Spontaneous
  Country: US (occurrence: US)
  Receive Date: 20250122
  Receipt Date: 20250306
  Transmission Date: 20250409
  Serious: No
  Sender: Kenvue
  Company Number: US-KENVUE-20250107463

PATIENT
  Age: 65 Year
  Sex: Female

DRUGS (12)
  1. TYLENOL [Suspect]
     Active Substance: ACETAMINOPHEN
     Indication: Infusion site pain
     Route: 065
     Dates: start: 202412
  2. TYLENOL [Suspect]
     Active Substance: ACETAMINOPHEN
     Indication: Headache
  3. TREPROSTINIL SODIUM [Concomitant]
     Active Substance: TREPROSTINIL SODIUM
     Indication: Pulmonary arterial hypertension
     Route: 058
  4. TREPROSTINIL SODIUM [Concomitant]
     Active Substance: TREPROSTINIL SODIUM
     Route: 058
     Dates: start: 202104
  5. TREPROSTINIL SODIUM [Concomitant]
     Active Substance: TREPROSTINIL SODIUM
     Route: 058
     Dates: start: 2024
  6. OPSUMIT [Concomitant]
     Active Substance: MACITENTAN
     Indication: Product used for unknown indication
     Route: 065
  7. ADEMPAS [Concomitant]
     Active Substance: RIOCIGUAT
     Indication: Product used for unknown indication
     Route: 065
  8. LOPERAMIDE [Concomitant]
     Active Substance: LOPERAMIDE
     Indication: Diarrhoea
     Route: 065
  9. ORENITRAM [Concomitant]
     Active Substance: TREPROSTINIL
     Indication: Pulmonary arterial hypertension
     Dosage: 8 MILLIGRAM, THRICE A DAY (1-5 MG PLUS 1-2.5 MG PLUS 2-0.25 MG)
     Route: 048
     Dates: start: 202501, end: 202501
  10. ORENITRAM [Concomitant]
     Active Substance: TREPROSTINIL
     Dosage: 12 MILLIGRAM, THRICE A DAY (TAKING 2-5MG AND 2-1 MG TABLETS)
     Route: 048
     Dates: start: 202501
  11. ORENITRAM [Concomitant]
     Active Substance: TREPROSTINIL
     Route: 048
     Dates: start: 202501
  12. OXYGEN [Concomitant]
     Active Substance: OXYGEN
     Indication: Product used for unknown indication
     Route: 065
     Dates: start: 2024

REACTIONS (1)
  - Therapeutic product effect incomplete [Unknown]

NARRATIVE: CASE EVENT DATE: 20241201
